FAERS Safety Report 24876906 (Version 1)
Quarter: 2025Q1

REPORT INFORMATION
  Report Type: Spontaneous
  Country: US (occurrence: US)
  Receive Date: 20250123
  Receipt Date: 20250123
  Transmission Date: 20250409
  Serious: No
  Sender: CHURCH & DWIGHT
  Company Number: US-ChurchDwight-2025-CDW-00074

PATIENT

DRUGS (1)
  1. ZICAM NOS [Suspect]
     Active Substance: UNSPECIFIED INGREDIENT
     Indication: Product used for unknown indication
     Route: 065

REACTIONS (1)
  - Anosmia [Unknown]
